FAERS Safety Report 7797895-0 (Version None)
Quarter: 2011Q4

REPORT INFORMATION
  Report Type: 
  Country: None (occurrence: None)
  Receive Date: 20111005
  Receipt Date: 20110923
  Transmission Date: 20120403
  Serious: Yes (Hospitalization)
  Sender: FDA-Public Use
  Company Number: FR-JNJFOC-20110907053

PATIENT
  Sex: Female

DRUGS (11)
  1. NEORAL [Suspect]
     Dosage: 400 MG/D
     Route: 048
     Dates: start: 20110820, end: 20110820
  2. VALGANCICLOVIR [Suspect]
     Route: 048
     Dates: start: 20110803
  3. FLUCONAZOLE [Interacting]
     Indication: PRODUCT USED FOR UNKNOWN INDICATION
     Route: 048
     Dates: start: 20110720, end: 20110823
  4. NEORAL [Suspect]
     Route: 048
     Dates: start: 20110728, end: 20110803
  5. NEORAL [Suspect]
     Indication: LIVER TRANSPLANT
     Route: 048
     Dates: start: 20110821, end: 20110823
  6. NEORAL [Suspect]
     Dosage: 200 MG/D
     Route: 048
     Dates: start: 20110810, end: 20110819
  7. MYCOPHENOLATE MOFETIL (CELLCEPT) [Suspect]
     Indication: PRODUCT USED FOR UNKNOWN INDICATION
     Dosage: 1500 MG, 2/DAY
     Route: 048
     Dates: start: 20110722
  8. TRAMADOL HCL [Suspect]
     Indication: PRODUCT USED FOR UNKNOWN INDICATION
     Dosage: 100 MG/D
     Route: 048
     Dates: start: 20110728, end: 20110823
  9. VALGANCICLOVIR [Suspect]
     Indication: PRODUCT USED FOR UNKNOWN INDICATION
     Route: 048
     Dates: start: 20110722, end: 20110824
  10. ORBENIN CAP [Concomitant]
     Route: 065
  11. FLUCONAZOLE [Interacting]
     Route: 048
     Dates: start: 20110722

REACTIONS (4)
  - DRUG INTERACTION [None]
  - OPSOCLONUS MYOCLONUS [None]
  - STATUS EPILEPTICUS [None]
  - AGITATION [None]
